FAERS Safety Report 8118307-3 (Version None)
Quarter: 2012Q1

REPORT INFORMATION
  Report Type: 
  Country: None (occurrence: None)
  Receive Date: 20120207
  Receipt Date: 20120130
  Transmission Date: 20120608
  Serious: Yes (Other)
  Sender: FDA-Public Use
  Company Number: CZ-PFIZER INC-2012031511

PATIENT
  Sex: Female

DRUGS (4)
  1. EFFEXOR XR [Suspect]
     Indication: POST-TRAUMATIC STRESS DISORDER
  2. EFFEXOR XR [Suspect]
     Indication: STRESS AT WORK
  3. EFFEXOR XR [Suspect]
     Indication: DEPRESSION
     Dosage: 150 MG, UNK
     Dates: start: 20110101
  4. EFFEXOR XR [Suspect]
     Indication: INSOMNIA
     Dosage: 75 MG, UNK

REACTIONS (11)
  - DRY SKIN [None]
  - PRURITUS [None]
  - LYMPHOEDEMA [None]
  - KETONURIA [None]
  - UROBILINOGEN URINE INCREASED [None]
  - BILIRUBINURIA [None]
  - POOR QUALITY SLEEP [None]
  - PROTEINURIA [None]
  - CONTUSION [None]
  - AGITATION [None]
  - RELAPSING FEVER [None]
